FAERS Safety Report 7605620-9 (Version None)
Quarter: 2011Q3

REPORT INFORMATION
  Report Type: 
  Country: None (occurrence: None)
  Receive Date: 20110713
  Receipt Date: 20110705
  Transmission Date: 20111222
  Serious: Yes (Other)
  Sender: FDA-Public Use
  Company Number: JP-JNJFOC-20110702995

PATIENT

DRUGS (2)
  1. ITRACONAZOLE [Suspect]
     Indication: CRYPTOCOCCOSIS
     Route: 048
  2. ITRACONAZOLE [Suspect]
     Route: 048

REACTIONS (2)
  - RENAL DISORDER [None]
  - DRUG INEFFECTIVE [None]
